FAERS Safety Report 18932841 (Version 2)
Quarter: 2024Q2

REPORT INFORMATION
  Report Type: Report from Study
  Country: CA (occurrence: None)
  Receive Date: 20210224
  Receipt Date: 20240503
  Transmission Date: 20240716
  Serious: Yes (Other)
  Sender: FDA-Public Use
  Company Number: CA-PFIZER INC-2021171010

PATIENT
  Age: 69 Year
  Sex: Female

DRUGS (16)
  1. METHOTREXATE [Suspect]
     Active Substance: METHOTREXATE
     Indication: Product used for unknown indication
  2. COSENTYX [Suspect]
     Active Substance: SECUKINUMAB
     Indication: Psoriatic arthropathy
  3. COSENTYX [Suspect]
     Active Substance: SECUKINUMAB
     Indication: Psoriasis
  4. COSENTYX [Suspect]
     Active Substance: SECUKINUMAB
  5. COSENTYX [Suspect]
     Active Substance: SECUKINUMAB
  6. COSENTYX [Suspect]
     Active Substance: SECUKINUMAB
  7. LEFLUNOMIDE [Suspect]
     Active Substance: LEFLUNOMIDE
     Indication: Product used for unknown indication
  8. ENBREL [Concomitant]
     Active Substance: BENZYL ALCOHOL\ETANERCEPT
     Dosage: 731 (DURATION NOT SPECIFIED)
  9. IBUPROFEN [Concomitant]
     Active Substance: IBUPROFEN
  10. IBUPROFEN [Concomitant]
     Active Substance: IBUPROFEN
     Dosage: UNKNOWN DETAILS
  11. NAPROXEN [Concomitant]
     Active Substance: NAPROXEN
  12. NAPROXEN [Concomitant]
     Active Substance: NAPROXEN
     Dosage: UNKNOWN DETAILS
  13. OMEPRAZOLE MAGNESIUM [Concomitant]
     Active Substance: OMEPRAZOLE MAGNESIUM
     Indication: Gastric ulcer
  14. OMEPRAZOLE MAGNESIUM [Concomitant]
     Active Substance: OMEPRAZOLE MAGNESIUM
     Dosage: UNKNOWN DETAILS
  15. SULFASALAZINE [Concomitant]
     Active Substance: SULFASALAZINE
  16. SULFASALAZINE [Concomitant]
     Active Substance: SULFASALAZINE
     Dosage: UNKNOWN DETAILS

REACTIONS (9)
  - Therapeutic product effect incomplete [Not Recovered/Not Resolved]
  - Cerebral disorder [Not Recovered/Not Resolved]
  - Dry skin [Not Recovered/Not Resolved]
  - Feeling abnormal [Not Recovered/Not Resolved]
  - Mobility decreased [Not Recovered/Not Resolved]
  - Osteoarthritis [Not Recovered/Not Resolved]
  - Pain [Not Recovered/Not Resolved]
  - Peripheral swelling [Not Recovered/Not Resolved]
  - Pruritus [Not Recovered/Not Resolved]
